FAERS Safety Report 4776726-7 (Version None)
Quarter: 2005Q3

REPORT INFORMATION
  Report Type: 
  Country: None (occurrence: None)
  Receive Date: 20050914
  Receipt Date: 20040907
  Transmission Date: 20060218
  Serious: Yes (Other)
  Sender: FDA-Public Use
  Company Number: 163-20785-04090288

PATIENT
  Age: 65 Year
  Sex: Male

DRUGS (9)
  1. THALOMID [Suspect]
     Indication: MULTIPLE MYELOMA
     Dosage: 200 MG, DAILY, ORAL
     Route: 048
     Dates: start: 20040408, end: 20040101
  2. ASPIRIN [Concomitant]
  3. LACTULOSE [Suspect]
  4. LASIX [Concomitant]
  5. BACTRIM [Concomitant]
  6. CALCIUM ( CALCIUM) [Concomitant]
  7. PROZAC [Concomitant]
  8. VIOXX [Concomitant]
  9. MULTIVITAMIN [Concomitant]

REACTIONS (1)
  - DEEP VEIN THROMBOSIS [None]
